FAERS Safety Report 7866520-2 (Version None)
Quarter: 2011Q4

REPORT INFORMATION
  Report Type: 
  Country: None (occurrence: None)
  Receive Date: 20111028
  Receipt Date: 20110628
  Transmission Date: 20120403
  Serious: No
  Sender: FDA-Public Use
  Company Number: US-GLAXOSMITHKLINE-A0933450A

PATIENT
  Age: 85 Year
  Sex: Female

DRUGS (16)
  1. PATANASE [Concomitant]
  2. ADVAIR DISKUS 100/50 [Suspect]
     Indication: ASTHMA
     Dosage: 1PUFF TWICE PER DAY
     Route: 055
     Dates: start: 20010101
  3. BEPREVE [Concomitant]
  4. ANTIBIOTICS [Concomitant]
  5. LEVOXYL [Concomitant]
  6. MURO [Concomitant]
  7. MUCINEX [Concomitant]
  8. FEXOFENADINE [Concomitant]
  9. PONARIS [Concomitant]
  10. PROAIR HFA [Concomitant]
  11. CALCIUM CARBONATE [Concomitant]
  12. DIGOXIN [Concomitant]
  13. UNKNOWN DRUG [Concomitant]
  14. ACIDOPHILUS [Concomitant]
  15. CALCIUM D [Concomitant]
  16. WARFARIN SODIUM [Concomitant]

REACTIONS (4)
  - BURNING SENSATION [None]
  - DRY EYE [None]
  - OEDEMA PERIPHERAL [None]
  - TOOTH EROSION [None]
